FAERS Safety Report 12429607 (Version 9)
Quarter: 2017Q1

REPORT INFORMATION
  Report Type: Report from Study
  Country: US (occurrence: US)
  Receive Date: 20160602
  Receipt Date: 20170207
  Transmission Date: 20170428
  Serious: Yes (Hospitalization, Other)
  Sender: FDA-Public Use
  Company Number: US-BAYER-2016-052101

PATIENT
  Age: 29 Year
  Sex: Female
  Weight: 53.52 kg

DRUGS (10)
  1. ADEMPAS [Suspect]
     Active Substance: RIOCIGUAT
     Indication: PULMONARY ARTERIAL HYPERTENSION
     Dosage: 2.5 MG, TID
     Route: 048
  2. ADEMPAS [Suspect]
     Active Substance: RIOCIGUAT
     Indication: PULMONARY ARTERIAL HYPERTENSION
     Dosage: 2.5 MG, TID
     Route: 048
  3. ADEMPAS [Suspect]
     Active Substance: RIOCIGUAT
     Indication: PULMONARY ARTERIAL HYPERTENSION
     Dosage: 2.5 MG, TID
     Route: 048
  4. DILTIAZEM. [Concomitant]
     Active Substance: DILTIAZEM
     Dosage: UNK
  5. ADEMPAS [Suspect]
     Active Substance: RIOCIGUAT
     Indication: PULMONARY ARTERIAL HYPERTENSION
     Dosage: UNK
     Dates: start: 20150820
  6. XARELTO [Concomitant]
     Active Substance: RIVAROXABAN
     Dosage: UNK
  7. ADCIRCA [Concomitant]
     Active Substance: TADALAFIL
     Dosage: UNK
  8. ADEMPAS [Suspect]
     Active Substance: RIOCIGUAT
     Indication: PULMONARY ARTERIAL HYPERTENSION
     Dosage: 2.5 MG, TID
     Route: 048
     Dates: start: 20170118
  9. LETAIRIS [Concomitant]
     Active Substance: AMBRISENTAN
     Dosage: UNK
  10. REMODULIN [Suspect]
     Active Substance: TREPROSTINIL
     Dosage: UNK

REACTIONS (20)
  - Lymphadenopathy [Unknown]
  - Application site pruritus [None]
  - Application site erythema [None]
  - Muscle spasms [Unknown]
  - Hospitalisation [None]
  - Device related infection [None]
  - Sepsis [Unknown]
  - Device dislocation [Unknown]
  - Injection site reaction [Unknown]
  - Chest pain [Unknown]
  - Pharyngitis streptococcal [Unknown]
  - Injection site pain [Unknown]
  - Flatulence [Unknown]
  - Asthma [Unknown]
  - Wheezing [Unknown]
  - Emergency care [Unknown]
  - Fluid retention [Unknown]
  - Infusion site cellulitis [Unknown]
  - Pyrexia [Unknown]
  - Application site perspiration [None]

NARRATIVE: CASE EVENT DATE: 201605
